FAERS Safety Report 5268427-6 (Version None)
Quarter: 2007Q1

REPORT INFORMATION
  Report Type: 
  Country: None (occurrence: None)
  Receive Date: 20070319
  Receipt Date: 20070309
  Transmission Date: 20070707
  Serious: Yes (Hospitalization)
  Sender: FDA-Public Use
  Company Number: FR-GLAXOSMITHKLINE-B0461622A

PATIENT
  Age: 42 Year
  Sex: Male

DRUGS (6)
  1. AVANDAMET [Suspect]
     Indication: DIABETES MELLITUS NON-INSULIN-DEPENDENT
     Route: 065
  2. INSULINE [Concomitant]
     Indication: DIABETES MELLITUS NON-INSULIN-DEPENDENT
     Route: 065
  3. PLAVIX [Concomitant]
     Route: 065
  4. MOPRAL [Concomitant]
     Route: 065
  5. TAHOR [Concomitant]
     Route: 065
  6. DETENSIEL [Concomitant]
     Route: 065

REACTIONS (2)
  - ARTHRALGIA [None]
  - VASCULAR PURPURA [None]
